FAERS Safety Report 7621121-6 (Version None)
Quarter: 2011Q3

REPORT INFORMATION
  Report Type: 
  Country: None (occurrence: None)
  Receive Date: 20110719
  Receipt Date: 20100917
  Transmission Date: 20111222
  Serious: No
  Sender: FDA-Public Use
  Company Number: US-KINGPHARMUSA00001-K200800663

PATIENT
  Age: 85 Year
  Sex: Female
  Weight: 63.492 kg

DRUGS (9)
  1. CALCIUM CARBONATE [Concomitant]
     Indication: PROPHYLAXIS
     Dosage: UNK
  2. LEVOXYL [Suspect]
     Dosage: 88 MCG, QD
     Route: 048
  3. LEVOXYL [Suspect]
     Indication: HYPOTHYROIDISM
     Dosage: 125 MCG, QD
     Route: 048
     Dates: end: 20080609
  4. LEVOXYL [Suspect]
     Dosage: 125 MCG, QD
     Route: 048
  5. METOPROLOL SUCCINATE [Suspect]
     Dosage: 50 MG, UNK
     Dates: start: 20080501
  6. LEVOXYL [Suspect]
     Dosage: 100 MCG, QD
     Route: 048
     Dates: start: 20100606
  7. LEVOXYL [Suspect]
     Dosage: 88 MCG, QD
     Route: 048
  8. ASPIRIN [Concomitant]
     Indication: PROPHYLAXIS
     Dosage: 81 MG, QD
  9. METOPROLOL SUCCINATE [Suspect]
     Indication: BLOOD PRESSURE INCREASED
     Dosage: 75 MG, QD
     Dates: end: 20080501

REACTIONS (6)
  - GAIT DISTURBANCE [None]
  - DIZZINESS [None]
  - FATIGUE [None]
  - RASH GENERALISED [None]
  - ERYTHEMA [None]
  - BLISTER [None]
